FAERS Safety Report 25875256 (Version 1)
Quarter: 2025Q4

REPORT INFORMATION
  Report Type: Report from Study
  Country: ZA (occurrence: ZA)
  Receive Date: 20251003
  Receipt Date: 20251003
  Transmission Date: 20260117
  Serious: Yes (Hospitalization)
  Sender: AMGEN
  Company Number: ZA-AMGEN-ZAFSL2025193943

PATIENT
  Age: 46 Year
  Sex: Female

DRUGS (1)
  1. ARANESP [Suspect]
     Active Substance: DARBEPOETIN ALFA
     Indication: Product used for unknown indication
     Dosage: 40 MICROGRAM/0.4ML, QWK
     Route: 065
     Dates: start: 20250922

REACTIONS (1)
  - Decreased appetite [Unknown]
